FAERS Safety Report 16707914 (Version 2)
Quarter: 2019Q3

REPORT INFORMATION
  Report Type: Report from Study
  Country: US (occurrence: US)
  Receive Date: 20190815
  Receipt Date: 20190830
  Transmission Date: 20191004
  Serious: Yes (Other)
  Sender: FDA-Public Use
  Company Number: US-ACTELION-A-NJ2019-188412

PATIENT
  Age: 56 Year
  Sex: Male
  Weight: 89.34 kg

DRUGS (5)
  1. OPSUMIT [Suspect]
     Active Substance: MACITENTAN
     Indication: PULMONARY HYPERTENSION
     Dosage: 10 MG, QD
     Route: 048
  2. UPTRAVI [Suspect]
     Active Substance: SELEXIPAG
     Dosage: 600 MCG, BID
     Route: 048
  3. UPTRAVI [Suspect]
     Active Substance: SELEXIPAG
     Indication: PULMONARY HYPERTENSION
     Dosage: 1000 MCG, BID
     Route: 048
     Dates: start: 20190314
  4. UPTRAVI [Suspect]
     Active Substance: SELEXIPAG
     Dosage: 800 MCG, BID
     Route: 048
     Dates: start: 20190314
  5. WARFARIN [Concomitant]
     Active Substance: WARFARIN

REACTIONS (21)
  - Constipation [Recovered/Resolved]
  - Feeling hot [Unknown]
  - Abdominal distension [Recovering/Resolving]
  - Paracentesis [Unknown]
  - Nausea [Recovering/Resolving]
  - Rash [Unknown]
  - Inguinal hernia [Unknown]
  - Headache [Unknown]
  - Fatigue [Recovered/Resolved]
  - Hepatic cirrhosis [Unknown]
  - Mobility decreased [Recovering/Resolving]
  - Diarrhoea [Unknown]
  - Influenza like illness [Unknown]
  - Malaise [Unknown]
  - Weight decreased [Unknown]
  - Eating disorder [Recovering/Resolving]
  - Pyrexia [Unknown]
  - Chills [Unknown]
  - Feeling abnormal [Recovered/Resolved]
  - Dyspnoea [Unknown]
  - Insomnia [Recovering/Resolving]

NARRATIVE: CASE EVENT DATE: 20190314
